FAERS Safety Report 12883138 (Version 2)
Quarter: 2016Q4

REPORT INFORMATION
  Report Type: Spontaneous
  Country: CN (occurrence: CN)
  Receive Date: 20161025
  Receipt Date: 20161118
  Transmission Date: 20170207
  Serious: Yes (Hospitalization)
  Sender: FDA-Public Use
  Company Number: CN-JNJFOC-20161020439

PATIENT
  Age: 60 Year
  Sex: Male

DRUGS (7)
  1. REMICADE [Suspect]
     Active Substance: INFLIXIMAB
     Indication: ANKYLOSING SPONDYLITIS
     Route: 042
  2. REMICADE [Suspect]
     Active Substance: INFLIXIMAB
     Indication: PSORIASIS
     Route: 042
  3. REMICADE [Suspect]
     Active Substance: INFLIXIMAB
     Indication: IRITIS
     Dosage: 4TH TREATMENT, STRENGTH 100 MG
     Route: 042
     Dates: start: 201608
  4. REMICADE [Suspect]
     Active Substance: INFLIXIMAB
     Indication: IRITIS
     Route: 042
  5. METHOTREXATE. [Concomitant]
     Active Substance: METHOTREXATE
     Route: 065
  6. REMICADE [Suspect]
     Active Substance: INFLIXIMAB
     Indication: PSORIASIS
     Dosage: 4TH TREATMENT, STRENGTH 100 MG
     Route: 042
     Dates: start: 201608
  7. REMICADE [Suspect]
     Active Substance: INFLIXIMAB
     Indication: ANKYLOSING SPONDYLITIS
     Dosage: 4TH TREATMENT, STRENGTH 100 MG
     Route: 042
     Dates: start: 201608

REACTIONS (14)
  - Laboratory test abnormal [Unknown]
  - Osteoarthritis [Unknown]
  - Hypercholesterolaemia [Unknown]
  - Anaemia [Unknown]
  - Hypoproteinaemia [Unknown]
  - Appendicectomy [Unknown]
  - Asthma [Unknown]
  - Hepatic cyst [Unknown]
  - Pulmonary tuberculosis [Unknown]
  - Osteopenia [Unknown]
  - Pleural thickening [Unknown]
  - Iritis [Unknown]
  - Hypertension [Unknown]
  - Atrioventricular block [Unknown]

NARRATIVE: CASE EVENT DATE: 201609
